FAERS Safety Report 4986947-6 (Version None)
Quarter: 2006Q2

REPORT INFORMATION
  Report Type: 
  Country: None (occurrence: None)
  Receive Date: 20060427
  Receipt Date: 20060427
  Transmission Date: 20061013
  Serious: Yes (Disabling)
  Sender: FDA-Public Use
  Company Number: None

PATIENT
  Age: 76 Year
  Sex: Female
  Weight: 66 kg

DRUGS (10)
  1. LENALIDOMIDE [Suspect]
     Indication: MYELODYSPLASTIC SYNDROME
     Dosage: 5 MG DAILY PO
     Route: 048
     Dates: start: 20060411
  2. LENALIDOMIDE [Suspect]
     Indication: MYELODYSPLASTIC SYNDROME
     Dosage: 5 MG DAILY PO
     Route: 048
     Dates: start: 20060421
  3. COZAAR [Concomitant]
  4. LEVOXYL [Concomitant]
  5. PREVACID [Concomitant]
  6. HYDROXYUREA [Concomitant]
  7. OGEN [Concomitant]
  8. ARANESP [Concomitant]
  9. GLUCOPHAGE [Concomitant]
  10. CELEXA [Concomitant]

REACTIONS (2)
  - BLINDNESS UNILATERAL [None]
  - IRITIS [None]
